FAERS Safety Report 7012842-7 (Version None)
Quarter: 2010Q3

REPORT INFORMATION
  Report Type: 
  Country: None (occurrence: None)
  Receive Date: 20100924
  Receipt Date: 20100915
  Transmission Date: 20110219
  Serious: Yes (Hospitalization)
  Sender: FDA-Public Use
  Company Number: B0676102A

PATIENT
  Sex: Female

DRUGS (3)
  1. AMOXICILLIN AND CLAVULANATE POTASSIUM [Suspect]
     Indication: PHARYNGITIS
     Dosage: 2G PER DAY
     Route: 048
     Dates: start: 20100818, end: 20100820
  2. DELTACORTENE [Concomitant]
  3. ZANTAC [Concomitant]

REACTIONS (4)
  - HYPERHIDROSIS [None]
  - MALAISE [None]
  - PRURITUS [None]
  - VISUAL ACUITY REDUCED [None]
